FAERS Safety Report 8373612-0 (Version None)
Quarter: 2012Q2

REPORT INFORMATION
  Report Type: 
  Country: None (occurrence: None)
  Receive Date: 20120521
  Receipt Date: 20120202
  Transmission Date: 20120825
  Serious: Yes (Hospitalization)
  Sender: FDA-Public Use
  Company Number: US-TEVA-320843USA

PATIENT
  Sex: Male

DRUGS (10)
  1. TREANDA [Suspect]
     Indication: CHRONIC LYMPHOCYTIC LEUKAEMIA
     Route: 042
     Dates: start: 20110817
  2. ALLOPURINOL [Concomitant]
     Indication: TUMOUR LYSIS SYNDROME
     Dates: start: 20110815
  3. OLMESARTAN MEDOXOMIL [Concomitant]
     Indication: HYPERTENSION
     Route: 048
     Dates: start: 20110101
  4. SIMVASTATIN [Concomitant]
     Indication: HYPERLIPIDAEMIA
     Route: 048
     Dates: start: 20110331
  5. SUXATRIPTAN [Concomitant]
     Indication: MIGRAINE
     Route: 048
     Dates: start: 20110331
  6. ACETAMINOPHEN [Concomitant]
     Indication: PROPHYLAXIS
     Dates: start: 20110816
  7. DIPHENHYDRAMINE HYDROCHLORIDE [Concomitant]
     Indication: PROPHYLAXIS
     Dates: start: 20110816
  8. TOPIRAMATE [Concomitant]
     Indication: MIGRAINE
     Dates: start: 20110101
  9. RITUXIMAB [Suspect]
     Indication: CHRONIC LYMPHOCYTIC LEUKAEMIA
     Route: 042
     Dates: start: 20110816, end: 20110816
  10. RITUXIMAB [Suspect]
     Route: 042
     Dates: start: 20110913

REACTIONS (2)
  - PYREXIA [None]
  - DYSPNOEA [None]
